FAERS Safety Report 13274644 (Version 1)
Quarter: 2017Q1

REPORT INFORMATION
  Report Type: Spontaneous
  Country: None (occurrence: US)
  Receive Date: 20170227
  Receipt Date: 20170227
  Transmission Date: 20170428
  Serious: No
  Sender: FDA-Public Use
  Company Number: US-MATRIXX INITIATIVES, INC.-1063639

PATIENT
  Age: 33 Year
  Sex: Male
  Weight: 68.18 kg

DRUGS (1)
  1. ZICAM COLD REMEDY ULTRA CRYSTALS [Suspect]
     Active Substance: HOMEOPATHICS
     Indication: NASOPHARYNGITIS
     Route: 048

REACTIONS (2)
  - Anosmia [None]
  - Ageusia [None]
